FAERS Safety Report 21944651 (Version 2)
Quarter: 2023Q1

REPORT INFORMATION
  Report Type: Spontaneous
  Country: JP (occurrence: JP)
  Receive Date: 20230202
  Receipt Date: 20230316
  Transmission Date: 20230418
  Serious: Yes (Hospitalization)
  Sender: FDA-Public Use
  Company Number: JP-KOWA-23JP000104

PATIENT
  Age: 63 Year
  Sex: Female
  Weight: 50.2 kg

DRUGS (7)
  1. LIVALO [Suspect]
     Active Substance: PITAVASTATIN CALCIUM
     Indication: Dyslipidaemia
     Dosage: 1 MG, QD
     Route: 048
     Dates: end: 20220620
  2. CLOTIAZEPAM [Suspect]
     Active Substance: CLOTIAZEPAM
     Indication: Anxiety disorder
     Dosage: 5 MG, BID
     Route: 048
     Dates: end: 20220620
  3. SULPIRIDE [Suspect]
     Active Substance: SULPIRIDE
     Indication: Anxiety disorder
     Dosage: 100 MG, BID
     Route: 048
     Dates: end: 20220620
  4. BROTIZOLAM [Suspect]
     Active Substance: BROTIZOLAM
     Indication: Insomnia
     Dosage: 0.25 MG, QD
     Route: 048
     Dates: end: 20220620
  5. ZOLPIDEM TARTRATE [Suspect]
     Active Substance: ZOLPIDEM TARTRATE
     Indication: Insomnia
     Dosage: 10 MG, QD
     Route: 048
     Dates: end: 20220620
  6. TENELIGLIPTIN [Concomitant]
     Active Substance: TENELIGLIPTIN
     Indication: Product used for unknown indication
     Dosage: UNK, UNK
     Route: 048
  7. SENNOSIDES [Concomitant]
     Active Substance: SENNOSIDES
     Indication: Product used for unknown indication
     Dosage: UNK, UNK
     Route: 048

REACTIONS (1)
  - Rhabdomyolysis [Recovering/Resolving]

NARRATIVE: CASE EVENT DATE: 20220620
